FAERS Safety Report 8351329-6 (Version None)
Quarter: 2012Q2

REPORT INFORMATION
  Report Type: 
  Country: None (occurrence: None)
  Receive Date: 20120510
  Receipt Date: 20120426
  Transmission Date: 20120825
  Serious: Yes (Hospitalization, Other)
  Sender: FDA-Public Use
  Company Number: CN-BAXTER-2012BAX004194

PATIENT
  Age: 57 Year
  Sex: Male
  Weight: 70 kg

DRUGS (3)
  1. LOW CALCIUM PERITONEAL DIALYSIS SOLUTION ( LACTATE- G2.5%) [Suspect]
     Route: 033
     Dates: end: 20120426
  2. LACTULOSE [Concomitant]
     Indication: PURGING
     Route: 065
  3. NIFEDIPINE [Concomitant]
     Indication: HYPERTENSION
     Route: 065

REACTIONS (3)
  - GASTROINTESTINAL NECROSIS [None]
  - PERITONITIS BACTERIAL [None]
  - ENTERITIS [None]
